FAERS Safety Report 10331024 (Version 1)
Quarter: 2014Q3

REPORT INFORMATION
  Report Type: Spontaneous
  Country: US (occurrence: None)
  Receive Date: 20140721
  Receipt Date: 20140721
  Transmission Date: 20150326
  Serious: Yes (Hospitalization)
  Sender: FDA-Public Use
  Company Number: None

PATIENT
  Age: 67 Year
  Sex: Male

DRUGS (6)
  1. PANTOPRAZOLE [Concomitant]
     Active Substance: PANTOPRAZOLE SODIUM
  2. POTASSIUM CL [Concomitant]
     Active Substance: POTASSIUM CHLORIDE
  3. PREDNISONE. [Concomitant]
     Active Substance: PREDNISONE
  4. METOLAZONE. [Concomitant]
     Active Substance: METOLAZONE
  5. CORTIA [Concomitant]
  6. ZYTIGA [Suspect]
     Active Substance: ABIRATERONE ACETATE
     Indication: PROSTATE CANCER
     Route: 048
     Dates: start: 20140217, end: 20140615

REACTIONS (1)
  - Acquired haemophilia [None]

NARRATIVE: CASE EVENT DATE: 201406
